FAERS Safety Report 22922576 (Version 4)
Quarter: 2024Q1

REPORT INFORMATION
  Report Type: Report from Study
  Country: US (occurrence: US)
  Receive Date: 20230908
  Receipt Date: 20240320
  Transmission Date: 20240410
  Serious: Yes (Hospitalization)
  Sender: FDA-Public Use
  Company Number: US-BAUSCH-BL-2023-013393

PATIENT
  Age: 52 Year
  Sex: Female

DRUGS (1)
  1. XIFAXAN [Suspect]
     Active Substance: RIFAXIMIN
     Indication: Hepatic encephalopathy
     Route: 048
     Dates: start: 20230727

REACTIONS (5)
  - Fall [Unknown]
  - Haematoma infection [Unknown]
  - Respiratory distress [Unknown]
  - Endocarditis bacterial [Unknown]
  - Ascites [Unknown]

NARRATIVE: CASE EVENT DATE: 20230101
